FAERS Safety Report 12592692 (Version 1)
Quarter: 2016Q3

REPORT INFORMATION
  Report Type: Spontaneous
  Country: US (occurrence: US)
  Receive Date: 20160726
  Receipt Date: 20160726
  Transmission Date: 20161109
  Serious: Yes (Death)
  Sender: FDA-Public Use
  Company Number: US-PFIZER INC-2016355102

PATIENT
  Age: 37 Year
  Sex: Male

DRUGS (6)
  1. PENICILLIN [Concomitant]
     Active Substance: PENICILLIN
     Indication: PNEUMONIA STAPHYLOCOCCAL
     Dosage: UNK
  2. TETRACYCLINE HCL [Suspect]
     Active Substance: TETRACYCLINE HYDROCHLORIDE
     Indication: PNEUMONIA STAPHYLOCOCCAL
     Dosage: UNK
  3. KANAMYCIN [Suspect]
     Active Substance: KANAMYCIN\KANAMYCIN A SULFATE
     Indication: PNEUMONIA STAPHYLOCOCCAL
     Dosage: UNK
  4. CHLORAMPHENICOL [Suspect]
     Active Substance: CHLORAMPHENICOL
     Indication: PNEUMONIA STAPHYLOCOCCAL
  5. ERYTHROMYCIN. [Suspect]
     Active Substance: ERYTHROMYCIN
     Indication: PNEUMONIA STAPHYLOCOCCAL
     Dosage: UNK
  6. VANCOMYCIN [Concomitant]
     Active Substance: VANCOMYCIN
     Indication: PNEUMONIA STAPHYLOCOCCAL
     Dosage: 1 G, 2X/DAY (EVERY 12 HRS)
     Route: 042

REACTIONS (1)
  - Drug ineffective [Fatal]
